FAERS Safety Report 19070025 (Version 1)
Quarter: 2021Q1

REPORT INFORMATION
  Report Type: Spontaneous
  Country: JP (occurrence: JP)
  Receive Date: 20210329
  Receipt Date: 20210329
  Transmission Date: 20210420
  Serious: Yes (Other)
  Sender: FDA-Public Use
  Company Number: JP-PFIZER INC-2021310427

PATIENT
  Age: 85 Year
  Sex: Female

DRUGS (1)
  1. TRIAZOLAM. [Suspect]
     Active Substance: TRIAZOLAM
     Dosage: UNK

REACTIONS (4)
  - Altered state of consciousness [Recovering/Resolving]
  - Overdose [Recovering/Resolving]
  - Substance use disorder [Recovering/Resolving]
  - Substance-induced psychotic disorder [Recovering/Resolving]
